FAERS Safety Report 4809912-8 (Version None)
Quarter: 2005Q4

REPORT INFORMATION
  Report Type: 
  Country: None (occurrence: None)
  Receive Date: 20051024
  Receipt Date: 20051024
  Transmission Date: 20060501
  Serious: Yes (Other)
  Sender: FDA-Public Use
  Company Number: None

PATIENT
  Age: 62 Year
  Sex: Female
  Weight: 90.7194 kg

DRUGS (2)
  1. FLUOXETINE [Suspect]
     Indication: ANXIETY
     Dosage: ONE   AT BED  PO
     Route: 048
     Dates: start: 20050920, end: 20051021
  2. FLUOXETINE [Suspect]
     Indication: SLEEP DISORDER
     Dosage: ONE   AT BED  PO
     Route: 048
     Dates: start: 20050920, end: 20051021

REACTIONS (2)
  - DRUG INEFFECTIVE [None]
  - SEDATION [None]
